FAERS Safety Report 18524129 (Version 1)
Quarter: 2020Q4

REPORT INFORMATION
  Report Type: Spontaneous
  Country: US (occurrence: US)
  Receive Date: 20201119
  Receipt Date: 20201119
  Transmission Date: 20210114
  Serious: Yes (Death, Hospitalization, Other)
  Sender: FDA-Public Use
  Company Number: US-PURDUE-USA-2020-0177606

PATIENT
  Age: 91 Year
  Sex: Male

DRUGS (3)
  1. HYDROCODONE [Suspect]
     Active Substance: HYDROCODONE
     Indication: PROSTATE CANCER
     Dosage: UNKNOWN
     Route: 065
  2. PROMETHAZINE W/CODEINE             /06838701/ [Suspect]
     Active Substance: CODEINE\PROMETHAZINE
     Indication: PROSTATE CANCER
     Dosage: UNKNOWN
     Route: 065
  3. HYDROMORPHONE HCL ORAL SOLUTION (RHODES) [Suspect]
     Active Substance: HYDROMORPHONE HYDROCHLORIDE
     Indication: PROSTATE CANCER
     Dosage: UNKNOWN
     Route: 048

REACTIONS (8)
  - Hospitalisation [Unknown]
  - Fall [Unknown]
  - Cerebrovascular accident [Unknown]
  - Death [Fatal]
  - Cardiac disorder [Unknown]
  - Overdose [Unknown]
  - Drug dependence [Unknown]
  - Dizziness [Unknown]

NARRATIVE: CASE EVENT DATE: 20160813
